FAERS Safety Report 8336773-5 (Version None)
Quarter: 2012Q2

REPORT INFORMATION
  Report Type: 
  Country: None (occurrence: None)
  Receive Date: 20120504
  Receipt Date: 20100621
  Transmission Date: 20120825
  Serious: No
  Sender: FDA-Public Use
  Company Number: US-TEVA-2010003346

PATIENT
  Sex: Female
  Weight: 43.13 kg

DRUGS (3)
  1. NUVIGIL [Suspect]
     Indication: CHRONIC FATIGUE SYNDROME
     Route: 048
     Dates: start: 20090101
  2. PREVACID [Suspect]
  3. NUVIGIL [Suspect]
     Indication: FIBROMYALGIA
     Route: 048
     Dates: start: 20090101

REACTIONS (1)
  - DRUG INEFFECTIVE FOR UNAPPROVED INDICATION [None]
